FAERS Safety Report 20460280 (Version 1)
Quarter: 2022Q1

REPORT INFORMATION
  Report Type: Spontaneous
  Country: GB (occurrence: GB)
  Receive Date: 20220211
  Receipt Date: 20220211
  Transmission Date: 20220424
  Serious: No
  Sender: FDA-Public Use
  Company Number: None

PATIENT
  Age: 79 Year
  Sex: Female

DRUGS (1)
  1. CEPHALEXIN [Suspect]
     Active Substance: CEPHALEXIN
     Indication: Infection
     Dosage: UNK
     Route: 065
     Dates: start: 20210106, end: 20210118

REACTIONS (6)
  - Blepharitis [Unknown]
  - Gait disturbance [Unknown]
  - Dyspnoea [Unknown]
  - Ill-defined disorder [Unknown]
  - Illness [Unknown]
  - Fatigue [Unknown]
